FAERS Safety Report 9402765 (Version 1)
Quarter: 2013Q3

REPORT INFORMATION
  Report Type: Spontaneous
  Country: US (occurrence: None)
  Receive Date: 20130715
  Receipt Date: 20130715
  Transmission Date: 20140520
  Serious: Yes (Other)
  Sender: FDA-Public Use
  Company Number: None

PATIENT
  Age: 27 Year
  Sex: Female

DRUGS (2)
  1. MAGNEVIST [Suspect]
     Indication: NUCLEAR MAGNETIC RESONANCE IMAGING
     Dates: start: 20130607, end: 20130607
  2. MAGNEVIST [Suspect]
     Indication: SCAN WITH CONTRAST
     Dates: start: 20130607, end: 20130607

REACTIONS (3)
  - Angioedema [None]
  - Dysphagia [None]
  - Dyspnoea [None]
